FAERS Safety Report 8814414 (Version 4)
Quarter: 2012Q4

REPORT INFORMATION
  Report Type: 
  Country: US (occurrence: US)
  Receive Date: 20120928
  Receipt Date: 20121126
  Transmission Date: 20130627
  Serious: Yes (Other)
  Sender: FDA-Public Use
  Company Number: US-PFIZER INC-2012236584

PATIENT
  Age: 57 Year
  Sex: Female
  Weight: 66.67 kg

DRUGS (13)
  1. TOVIAZ [Suspect]
     Indication: URINARY INCONTINENCE
     Dosage: 4 mg, daily
     Dates: start: 201209, end: 20120924
  2. XANAX [Suspect]
     Indication: PANIC ATTACKS
     Dosage: UNK
  3. HYDROCODONE [Concomitant]
     Indication: MIGRAINE
     Dosage: two and a half to three tablets of 20 mg as needed
  4. HYDROCODONE [Concomitant]
     Indication: ARTHRITIS
  5. ATENOLOL [Concomitant]
     Indication: BLOOD PRESSURE HIGH
     Dosage: 25 mg, Daily
  6. LISINOPRIL [Concomitant]
     Indication: BLOOD PRESSURE HIGH
     Dosage: 30 mg, Daily
  7. ZYRTEC [Concomitant]
     Indication: ALLERGY
     Dosage: 10 mg, Daily
  8. LEVOTHYROXINE [Concomitant]
     Indication: THYROID DISORDER
     Dosage: 150 ug, Daily
  9. CYTOMEL [Concomitant]
     Indication: THYROID DISORDER
     Dosage: 25 ug, Daily
  10. TEMAZEPAM [Concomitant]
     Indication: SLEEP PROBLEM
     Dosage: 30 mg, Daily at night
  11. EFFIENT [Concomitant]
     Indication: ANTICOAGULANT THERAPY
     Dosage: 10 mg, Daily
  12. FUROSEMIDE [Concomitant]
     Dosage: 40 mg, Daily
  13. POTASSIUM [Concomitant]
     Indication: BLOOD POTASSIUM DECREASED
     Dosage: two tablets daily

REACTIONS (3)
  - Road traffic accident [Unknown]
  - Mental impairment [Unknown]
  - Drug ineffective [Unknown]
